FAERS Safety Report 9409491 (Version 1)
Quarter: 2013Q3

REPORT INFORMATION
  Report Type: Spontaneous
  Country: ES (occurrence: ES)
  Receive Date: 20130719
  Receipt Date: 20130719
  Transmission Date: 20140515
  Serious: Yes (Other)
  Sender: FDA-Public Use
  Company Number: ES-JNJFOC-20130706709

PATIENT
  Sex: 0

DRUGS (5)
  1. DOXORUBICIN HYDROCHLORIDE [Suspect]
     Indication: NEOPLASM MALIGNANT
     Dosage: MEDIAN EQUIVALENT CUMULATIVE DOSE 284 MG/M2
     Route: 042
  2. EPIRUBICIN [Suspect]
     Indication: NEOPLASM MALIGNANT
     Route: 065
  3. DAUNORUBICIN [Suspect]
     Indication: NEOPLASM MALIGNANT
     Route: 065
  4. IDARUBICIN [Suspect]
     Indication: NEOPLASM MALIGNANT
     Route: 065
  5. MITOXANTRONE [Suspect]
     Indication: NEOPLASM MALIGNANT
     Route: 065

REACTIONS (11)
  - Cardiac disorder [Unknown]
  - Cardiac failure [Unknown]
  - Cardiac hypertrophy [Unknown]
  - Endocardial fibrosis [Unknown]
  - Myocardial fibrosis [Unknown]
  - Necrosis [Unknown]
  - Myocardial necrosis [Unknown]
  - Cell death [Unknown]
  - Myocardial haemorrhage [Unknown]
  - Lung infiltration [Unknown]
  - Neoplasm progression [Unknown]
